FAERS Safety Report 7456162-5 (Version None)
Quarter: 2011Q2

REPORT INFORMATION
  Report Type: 
  Country: None (occurrence: None)
  Receive Date: 20110503
  Receipt Date: 20110419
  Transmission Date: 20111010
  Serious: Yes (Hospitalization)
  Sender: FDA-Public Use
  Company Number: GB-GENENTECH-317462

PATIENT
  Sex: Female
  Weight: 102 kg

DRUGS (12)
  1. FOLIC ACID [Concomitant]
     Indication: PRODUCT USED FOR UNKNOWN INDICATION
     Dosage: 15 MG, 1/WEEK
     Dates: start: 20010221
  2. METHOTREXATE [Concomitant]
     Indication: PRODUCT USED FOR UNKNOWN INDICATION
     Dosage: 15 MG, 1/WEEK
     Dates: start: 20010221
  3. THEOPHYLLINE [Concomitant]
     Indication: PRODUCT USED FOR UNKNOWN INDICATION
     Dosage: UNK
     Dates: start: 20040101
  4. HYDROXYCHLOROQUINE [Concomitant]
     Indication: PRODUCT USED FOR UNKNOWN INDICATION
     Dosage: UNK
     Dates: start: 20050101
  5. RITUXIMAB [Suspect]
     Indication: RHEUMATOID ARTHRITIS
     Dosage: 1000 MG, UNK
     Route: 042
     Dates: start: 20110211
  6. FLUTICASONE PROPIONATE [Concomitant]
     Indication: PRODUCT USED FOR UNKNOWN INDICATION
     Dosage: 1 PUFF, UNK
     Dates: start: 20040101
  7. BENDROFLUMETHIAZIDE [Concomitant]
     Indication: PRODUCT USED FOR UNKNOWN INDICATION
  8. OMEPRAZOLE [Concomitant]
     Indication: PRODUCT USED FOR UNKNOWN INDICATION
     Dosage: UNK
     Dates: start: 20070101
  9. CELECOXIB [Concomitant]
     Indication: PRODUCT USED FOR UNKNOWN INDICATION
     Dosage: 400 MG, UNK
     Dates: start: 20010101
  10. ALBUTEROL SULFATE AUTOHALER [Concomitant]
     Indication: PRODUCT USED FOR UNKNOWN INDICATION
  11. ZAFIRLUKAST [Concomitant]
     Indication: PRODUCT USED FOR UNKNOWN INDICATION
  12. FERROUS SULFATE TAB [Concomitant]
     Indication: PRODUCT USED FOR UNKNOWN INDICATION
     Dosage: 200 MG, UNK
     Dates: start: 20010101

REACTIONS (1)
  - ASTHMA [None]
